FAERS Safety Report 12444177 (Version 1)
Quarter: 2016Q2

REPORT INFORMATION
  Report Type: Spontaneous
  Country: US (occurrence: US)
  Receive Date: 20160607
  Receipt Date: 20160607
  Transmission Date: 20160815
  Serious: No
  Sender: FDA-Public Use
  Company Number: US-SA-2016SA062815

PATIENT
  Age: 60 Year
  Sex: Female

DRUGS (3)
  1. TOUJEO [Suspect]
     Active Substance: INSULIN GLARGINE
     Dosage: DOSE:22 UNIT(S)
     Route: 065
     Dates: start: 20160301, end: 20160302
  2. LANTUS [Concomitant]
     Active Substance: INSULIN GLARGINE
  3. SOLOSTAR [Concomitant]
     Active Substance: DEVICE
     Dates: start: 20160301, end: 20160302

REACTIONS (1)
  - Neck pain [Not Recovered/Not Resolved]
